FAERS Safety Report 6568880-1 (Version None)
Quarter: 2010Q1

REPORT INFORMATION
  Report Type: 
  Country: None (occurrence: None)
  Receive Date: 20100203
  Receipt Date: 20100128
  Transmission Date: 20100710
  Serious: Yes (Hospitalization, Other)
  Sender: FDA-Public Use
  Company Number: TW-ABBOTT-10P-153-0622708-00

PATIENT
  Sex: Male
  Weight: 47.6 kg

DRUGS (1)
  1. HUMIRA [Suspect]
     Indication: ANKYLOSING SPONDYLITIS
     Route: 058
     Dates: start: 20091110, end: 20100101

REACTIONS (2)
  - ASCITES [None]
  - TUBERCULOSIS [None]
